FAERS Safety Report 6611809-8 (Version None)
Quarter: 2010Q1

REPORT INFORMATION
  Report Type: 
  Country: None (occurrence: None)
  Receive Date: 20100226
  Receipt Date: 20100226
  Transmission Date: 20100710
  Serious: No
  Sender: FDA-Public Use
  Company Number: None

PATIENT
  Age: 50 Year
  Sex: Male
  Weight: 89.3586 kg

DRUGS (2)
  1. PAXIL [Suspect]
     Indication: ANXIETY
     Dosage: 40 MG TAB 1 QD PO MONTHS
     Route: 048
     Dates: start: 20030701, end: 20040130
  2. PAXIL [Suspect]
     Indication: OBSESSIVE-COMPULSIVE DISORDER
     Dosage: 40 MG TAB 1 QD PO MONTHS
     Route: 048
     Dates: start: 20030701, end: 20040130

REACTIONS (3)
  - ANXIETY [None]
  - INSOMNIA [None]
  - PRODUCT SUBSTITUTION ISSUE [None]
